FAERS Safety Report 21864514 (Version 2)
Quarter: 2023Q1

REPORT INFORMATION
  Report Type: Report from Study
  Country: US (occurrence: US)
  Receive Date: 20230116
  Receipt Date: 20230116
  Transmission Date: 20230417
  Serious: No
  Sender: FDA-Public Use
  Company Number: US-ABBVIE-4269796

PATIENT
  Age: 22 Year
  Sex: Female

DRUGS (2)
  1. HUMIRA [Suspect]
     Active Substance: ADALIMUMAB
     Indication: Rheumatoid arthritis
     Dosage: CITRATE FREE?LAST ADMIN DATE: JAN 2023
     Route: 058
     Dates: start: 20230110
  2. METHOTREXATE [Concomitant]
     Active Substance: METHOTREXATE
     Indication: Rheumatoid arthritis

REACTIONS (5)
  - Pain [Unknown]
  - Bacterial vulvovaginitis [Unknown]
  - Device issue [Unknown]
  - Vulvovaginal mycotic infection [Unknown]
  - Pain of skin [Unknown]

NARRATIVE: CASE EVENT DATE: 20230111
